FAERS Safety Report 25758838 (Version 2)
Quarter: 2025Q3

REPORT INFORMATION
  Report Type: Spontaneous
  Country: US (occurrence: US)
  Receive Date: 20250904
  Receipt Date: 20250925
  Transmission Date: 20251020
  Serious: Yes (Other)
  Sender: ROCHE
  Company Number: US-ROCHE-10000379843

PATIENT
  Sex: Female

DRUGS (1)
  1. ITOVEBI [Suspect]
     Active Substance: INAVOLISIB
     Indication: Breast cancer metastatic
     Dosage: ORALLY ONCE DAILY
     Route: 048

REACTIONS (3)
  - Thrombocytopenia [Unknown]
  - Fatigue [Not Recovered/Not Resolved]
  - Hyperglycaemia [Recovered/Resolved]
